FAERS Safety Report 25730880 (Version 1)
Quarter: 2025Q3

REPORT INFORMATION
  Report Type: Spontaneous
  Country: US (occurrence: US)
  Receive Date: 20250827
  Receipt Date: 20250827
  Transmission Date: 20251020
  Serious: Yes (Other)
  Sender: COOPERSURGICAL
  Company Number: US-COOPERSURGICAL, INC.-2025CPS006097

PATIENT
  Age: 32 Year
  Sex: Female
  Weight: 66.667 kg

DRUGS (2)
  1. PARAGARD T 380A [Suspect]
     Active Substance: COPPER
     Indication: Contraception
     Route: 015
     Dates: start: 20180620, end: 20190529
  2. PLAQUENIL [Concomitant]
     Active Substance: HYDROXYCHLOROQUINE SULFATE
     Dates: start: 201602

REACTIONS (6)
  - Systemic lupus erythematosus [Unknown]
  - Reproductive complication associated with device [Unknown]
  - Emotional distress [Unknown]
  - Abnormal uterine bleeding [Unknown]
  - Pain [Unknown]
  - Rash [Not Recovered/Not Resolved]

NARRATIVE: CASE EVENT DATE: 20190701
